FAERS Safety Report 9563572 (Version 1)
Quarter: 2013Q3

REPORT INFORMATION
  Report Type: Spontaneous
  Country: US (occurrence: None)
  Receive Date: 20130926
  Receipt Date: 20130926
  Transmission Date: 20140515
  Serious: Yes (Other)
  Sender: FDA-Public Use
  Company Number: IMP_06826_2013

PATIENT
  Age: 80 Year
  Sex: Male

DRUGS (11)
  1. VALPROIC [Suspect]
  2. VALPROIC [Suspect]
     Indication: COMPLEX PARTIAL SEIZURES
  3. ISONIAZID [Suspect]
     Indication: TUBERCULIN TEST
  4. ISONIAZID [Suspect]
  5. QUETIAPINE [Concomitant]
  6. OXYCODONE [Concomitant]
  7. TAMSULOSIN [Concomitant]
  8. FINASTERIDE [Concomitant]
  9. OMPERAZOLE [Concomitant]
  10. CYANOCOBALAMIN [Concomitant]
  11. PRRIDOXINE [Concomitant]

REACTIONS (8)
  - Hyperammonaemia [None]
  - Drug interaction [None]
  - Lethargy [None]
  - Decreased appetite [None]
  - Dysarthria [None]
  - Drooling [None]
  - Activities of daily living impaired [None]
  - Toxicity to various agents [None]
